FAERS Safety Report 15386997 (Version 3)
Quarter: 2018Q4

REPORT INFORMATION
  Report Type: Spontaneous
  Country: US (occurrence: US)
  Receive Date: 20180914
  Receipt Date: 20181113
  Transmission Date: 20190204
  Serious: Yes (Hospitalization)
  Sender: FDA-Public Use
  Company Number: US-SHIRE-US201834678

PATIENT
  Age: 49 Year
  Sex: Female

DRUGS (1)
  1. NATPARA (PARATHYROID HORMONE) [Suspect]
     Active Substance: PARATHYROID HORMONE
     Indication: PRODUCT USED FOR UNKNOWN INDICATION
     Dosage: 50 ?G, 1X/DAY:QD
     Route: 050
     Dates: start: 20170105

REACTIONS (4)
  - Product dose omission [Unknown]
  - Hypercalcaemia [Unknown]
  - Device use error [Unknown]
  - Tetany [Unknown]

NARRATIVE: CASE EVENT DATE: 201808
